FAERS Safety Report 5175390-5 (Version None)
Quarter: 2006Q4

REPORT INFORMATION
  Report Type: 
  Country: None (occurrence: None)
  Receive Date: 20061215
  Receipt Date: 20060920
  Transmission Date: 20070319
  Serious: Yes (Death)
  Sender: FDA-Public Use
  Company Number: JP-ELI_LILLY_AND_COMPANY-JP200609004993

PATIENT
  Age: 64 Year
  Sex: Male
  Weight: 63.5 kg

DRUGS (8)
  1. GEMZAR [Suspect]
     Indication: NON-SMALL CELL LUNG CANCER RECURRENT
     Dosage: 1200 MG, WEEKLY (1/W)
     Route: 042
     Dates: start: 20060714, end: 20060721
  2. GEMZAR [Suspect]
     Dosage: 1200 MG, WEEKLY (1/W)
     Route: 042
     Dates: start: 20060614, end: 20060621
  3. NAVELBINE [Concomitant]
     Indication: NON-SMALL CELL LUNG CANCER RECURRENT
     Dosage: 35 MG, WEEKLY (1/W)
     Route: 042
     Dates: start: 20060714, end: 20060721
  4. NAVELBINE [Concomitant]
     Dosage: 35 MG, WEEKLY (1/W)
     Route: 042
     Dates: start: 20060614, end: 20060621
  5. ALLOPURINOL [Concomitant]
     Dosage: 1 D/F, UNKNOWN
     Route: 048
  6. ASPIRIN [Concomitant]
     Dosage: 1 D/F, UNKNOWN
     Route: 048
  7. RENIVACE [Concomitant]
     Dosage: 1 D/F, UNKNOWN
     Route: 048
  8. PREDONINE [Concomitant]
     Dosage: 5 MG, UNKNOWN
     Route: 048

REACTIONS (5)
  - BLOOD PRESSURE DECREASED [None]
  - DILATATION VENTRICULAR [None]
  - DIZZINESS POSTURAL [None]
  - MALAISE [None]
  - PULMONARY INFARCTION [None]
